FAERS Safety Report 16624841 (Version 1)
Quarter: 2019Q3

REPORT INFORMATION
  Report Type: Spontaneous
  Country: CA (occurrence: CA)
  Receive Date: 20190724
  Receipt Date: 20190724
  Transmission Date: 20191004
  Serious: Yes (Other)
  Sender: FDA-Public Use
  Company Number: CA-PFIZER INC-2019310667

PATIENT
  Age: 69 Year
  Sex: Male

DRUGS (2)
  1. IMBRUVICA [Suspect]
     Active Substance: IBRUTINIB
     Indication: CHRONIC LYMPHOCYTIC LEUKAEMIA
     Dosage: UNK
     Route: 048
  2. DALTEPARIN SODIUM [Suspect]
     Active Substance: DALTEPARIN SODIUM
     Indication: SPLENIC VEIN THROMBOSIS
     Dosage: UNK
     Route: 065

REACTIONS (5)
  - Nail bed bleeding [Recovered/Resolved]
  - Contusion [Recovered/Resolved]
  - Ear haemorrhage [Recovered/Resolved]
  - Hypoacusis [Recovered/Resolved]
  - Drug ineffective [Recovered/Resolved]
